FAERS Safety Report 5952102-6 (Version None)
Quarter: 2008Q4

REPORT INFORMATION
  Report Type: 
  Country: None (occurrence: None)
  Receive Date: 20081113
  Receipt Date: 20080411
  Transmission Date: 20090506
  Serious: No
  Sender: FDA-Public Use
  Company Number: A0722365A

PATIENT
  Age: 57 Year
  Sex: Male

DRUGS (7)
  1. COREG [Suspect]
     Dosage: 6.25MG TWICE PER DAY
     Route: 048
     Dates: start: 20070310, end: 20070414
  2. COREG CR [Suspect]
     Dosage: 40MG PER DAY
     Route: 048
     Dates: start: 20070415
  3. ASPIRIN [Concomitant]
  4. LASIX [Concomitant]
  5. LANOXIN [Concomitant]
  6. PRINIVIL [Concomitant]
  7. COUMADIN [Concomitant]

REACTIONS (2)
  - HYPOTENSION [None]
  - SERUM FERRITIN INCREASED [None]
